FAERS Safety Report 17193534 (Version 1)
Quarter: 2019Q4

REPORT INFORMATION
  Report Type: Spontaneous
  Country: NO (occurrence: NO)
  Receive Date: 20191223
  Receipt Date: 20191223
  Transmission Date: 20200122
  Serious: Yes (Death)
  Sender: FDA-Public Use
  Company Number: NO-BAUSCH-BL-2019-065192

PATIENT
  Age: 5 Year
  Sex: Male
  Weight: 22.4 kg

DRUGS (2)
  1. TRAMETINIB [Suspect]
     Active Substance: TRAMETINIB
     Indication: PLEUROPULMONARY BLASTOMA
     Route: 048
     Dates: start: 20191003, end: 20191016
  2. PREDNISOLONE. [Suspect]
     Active Substance: PREDNISOLONE
     Indication: PRODUCT USED FOR UNKNOWN INDICATION
     Route: 065

REACTIONS (7)
  - Swelling face [Recovering/Resolving]
  - Face oedema [Unknown]
  - Malignant neoplasm progression [Fatal]
  - Swelling [Unknown]
  - Oedema peripheral [Unknown]
  - Localised oedema [Unknown]
  - Pleuropulmonary blastoma [Fatal]

NARRATIVE: CASE EVENT DATE: 20191008
